FAERS Safety Report 7750767-X (Version None)
Quarter: 2011Q3

REPORT INFORMATION
  Report Type: 
  Country: None (occurrence: None)
  Receive Date: 20110914
  Receipt Date: 20110906
  Transmission Date: 20111222
  Serious: Yes (Other)
  Sender: FDA-Public Use
  Company Number: US-JNJFOC-20110902569

PATIENT
  Sex: Male
  Weight: 47.63 kg

DRUGS (3)
  1. REMICADE [Suspect]
     Indication: COLITIS ULCERATIVE
     Route: 042
  2. APRISO [Concomitant]
     Indication: COLITIS ULCERATIVE
     Dosage: 1.15GMS/TABLET/.375GM4 CAPSULES DAILY/ORAL
     Route: 048
  3. REMICADE [Suspect]
     Route: 042
     Dates: start: 20110711, end: 20110725

REACTIONS (7)
  - INFUSION RELATED REACTION [None]
  - DIZZINESS [None]
  - HEART RATE INCREASED [None]
  - DYSPNOEA [None]
  - ABDOMINAL PAIN [None]
  - PAIN [None]
  - ERYTHEMA [None]
